FAERS Safety Report 8512656-2 (Version None)
Quarter: 2012Q3

REPORT INFORMATION
  Report Type: 
  Country: None (occurrence: None)
  Receive Date: 20120716
  Receipt Date: 20120705
  Transmission Date: 20120928
  Serious: Yes (Hospitalization, Other)
  Sender: FDA-Public Use
  Company Number: DK-PFIZER INC-2012044852

PATIENT
  Age: 78 Year
  Sex: Female
  Weight: 58 kg

DRUGS (34)
  1. DOXORUBICIN HCL [Suspect]
     Indication: DIFFUSE LARGE B-CELL LYMPHOMA
     Dosage: 88 MG, UNK
     Route: 042
     Dates: start: 20120109
  2. MIRTAZAPINE [Concomitant]
     Indication: DEPRESSION
     Dosage: 15 MG, UNK
     Route: 048
     Dates: start: 20111219
  3. DOXORUBICIN HCL [Suspect]
     Dosage: 90 MG, UNK
     Dates: start: 20120123, end: 20120101
  4. CYCLOPHOSPHAMIDE [Suspect]
     Indication: DIFFUSE LARGE B-CELL LYMPHOMA
     Dosage: 1320 MG, UNK
     Route: 042
     Dates: start: 20120109, end: 20120101
  5. RITUXAN [Suspect]
     Indication: DIFFUSE LARGE B-CELL LYMPHOMA
     Dosage: 600 MG, UNK
     Route: 042
     Dates: start: 20120109
  6. RITUXAN [Suspect]
     Dosage: 700 MG, UNK
     Route: 042
     Dates: start: 20120123
  7. NEUPOGEN [Suspect]
     Dosage: 6 MG, UNK
     Dates: start: 20120214
  8. NEUPOGEN [Suspect]
     Dosage: 6 MG, UNK
     Dates: start: 20120110
  9. DOXORUBICIN HCL [Suspect]
     Dosage: 85 MG, UNK
     Route: 042
     Dates: start: 20120213
  10. VINCRISTINE [Suspect]
     Dosage: 2 MG, UNK
     Route: 042
     Dates: start: 20120213
  11. PEGFILGRASTIM [Suspect]
     Dosage: 6 MG, UNK
     Route: 058
     Dates: start: 20120214
  12. NEUPOGEN [Suspect]
     Indication: B-CELL LYMPHOMA
     Dosage: 6 MG, UNK
     Dates: start: 20120128, end: 20120101
  13. PREDNISONE [Suspect]
     Dosage: 100 MG, UNK
     Route: 048
     Dates: start: 20120123, end: 20120101
  14. PREDNISONE [Suspect]
     Dosage: 100 MG, UNK
     Route: 048
     Dates: start: 20120213, end: 20120201
  15. RITUXAN [Suspect]
     Dosage: 600 MG, UNK
     Route: 042
     Dates: start: 20120218
  16. SIMVASTATIN [Concomitant]
     Dosage: 15 MG, UNK
     Dates: start: 20111219
  17. PREDNISONE [Suspect]
     Indication: DIFFUSE LARGE B-CELL LYMPHOMA
     Dosage: 100 MG, UNK
     Route: 048
     Dates: start: 20120109, end: 20120101
  18. PREDNISONE [Suspect]
     Dosage: 50 MG, DAY 6
  19. PREDNISONE [Suspect]
     Dosage: 10 MG, DAY 8
  20. PREDNISONE [Suspect]
     Dosage: 25 MG, DAY 7
  21. CYCLOPHOSPHAMIDE [Suspect]
     Dosage: 1350 MG, UNK
     Route: 042
     Dates: start: 20120123, end: 20120101
  22. CYCLOPHOSPHAMIDE [Suspect]
     Dosage: 1275 MG, UNK
     Route: 042
     Dates: start: 20120213
  23. PANTOPRAZOLE [Concomitant]
     Indication: DYSPEPSIA
     Dosage: 40 MG, UNK
     Route: 048
     Dates: start: 20120105
  24. SIMVASTATIN [Concomitant]
     Indication: BLOOD CHOLESTEROL INCREASED
     Dosage: 40 MG, UNK
     Route: 048
     Dates: start: 20100917
  25. SIMVASTATIN [Concomitant]
     Dosage: 40 MG, UNK
     Dates: start: 20110914
  26. SIMVASTATIN [Concomitant]
     Dosage: 40 MG, UNK
     Dates: start: 20100914
  27. VINCRISTINE [Suspect]
     Dosage: 42 MG, UNK
     Route: 042
     Dates: start: 20120123, end: 20120101
  28. PEGFILGRASTIM [Suspect]
     Indication: DIFFUSE LARGE B-CELL LYMPHOMA
     Dosage: 6 MG, UNK
     Route: 058
     Dates: start: 20120110
  29. TENORETIC [Concomitant]
     Indication: HYPERTENSION
     Dosage: 72.5 MG, UNK
     Route: 048
     Dates: start: 20111218
  30. VENLAFAXINE HYDROCHLORIDE [Concomitant]
     Indication: DEPRESSION
     Dosage: 75 MG, UNK
     Route: 048
     Dates: start: 20120105
  31. MORPHINE SULFATE [Concomitant]
     Dosage: 10 MG, UNK
     Route: 048
     Dates: start: 20111201
  32. PREDNISONE [Suspect]
     Dosage: 100 MG, UNK
     Route: 048
     Dates: start: 20120217
  33. VINCRISTINE [Suspect]
     Indication: DIFFUSE LARGE B-CELL LYMPHOMA
     Dosage: 2 MG, UNK
     Route: 042
     Dates: start: 20120109, end: 20120101
  34. PEGFILGRASTIM [Suspect]
     Dosage: 6 MG, UNK
     Route: 058
     Dates: start: 20120128, end: 20120101

REACTIONS (4)
  - WEIGHT DECREASED [None]
  - DIZZINESS [None]
  - ORAL CANDIDIASIS [None]
  - DEHYDRATION [None]
